FAERS Safety Report 7841095 (Version 3)
Quarter: 2013Q1

REPORT INFORMATION
  Report Type: Spontaneous
  Country: DE (occurrence: DE)
  Receive Date: 20110304
  Receipt Date: 20130313
  Transmission Date: 20140127
  Serious: Yes (Hospitalization, Disabling)
  Sender: FDA-Public Use
  Company Number: DE-NOVOPROD-323871

PATIENT
  Age: 39 Year
  Sex: Female
  Weight: 79 kg

DRUGS (4)
  1. NOVOSEVEN [Suspect]
     Indication: HAEMORRHAGE
     Route: 042
     Dates: start: 20110203
  2. NOVOSEVEN [Suspect]
     Route: 042
     Dates: start: 20110203
  3. NOVOSEVEN [Suspect]
     Route: 042
     Dates: start: 20110203
  4. L-THYROXIN [Concomitant]
     Indication: PRODUCT USED FOR UNKNOWN INDICATION
     Dosage: 100 UG, QD
     Route: 048
     Dates: start: 20110208

REACTIONS (2)
  - Cerebral infarction [Recovered/Resolved with Sequelae]
  - Thrombosis [Unknown]
